FAERS Safety Report 11119461 (Version 3)
Quarter: 2015Q2

REPORT INFORMATION
  Report Type: Spontaneous
  Country: US (occurrence: US)
  Receive Date: 20150518
  Receipt Date: 20150618
  Transmission Date: 20150821
  Serious: Yes (Hospitalization, Other)
  Sender: FDA-Public Use
  Company Number: US-009507513-1201USA03059

PATIENT
  Sex: Female

DRUGS (6)
  1. ACTONEL [Suspect]
     Active Substance: RISEDRONATE SODIUM
     Indication: BONE DENSITY DECREASED
     Dosage: 35 MG, QW
     Dates: start: 20021101
  2. ALENDRONATE SODIUM. [Suspect]
     Active Substance: ALENDRONATE SODIUM
     Indication: BONE DENSITY DECREASED
     Dosage: 70 MG, QW
     Route: 048
     Dates: start: 20080321, end: 20091219
  3. FOSAMAX [Suspect]
     Active Substance: ALENDRONATE SODIUM
     Indication: BONE DENSITY DECREASED
     Dosage: 70 MG, QW
     Route: 048
     Dates: start: 20021012, end: 20080703
  4. FOSAMAX [Suspect]
     Active Substance: ALENDRONATE SODIUM
     Route: 048
  5. VITAMINS (UNSPECIFIED) [Concomitant]
     Active Substance: VITAMINS
     Dosage: 1 DF, QD
     Dates: start: 1995
  6. CALCIUM CITRATE (+) VITAMIN D (UNSPECIFIED) [Concomitant]
     Dosage: 3 DF, QD
     Dates: start: 1995

REACTIONS (13)
  - Electrocardiogram U-wave abnormality [Unknown]
  - Foot fracture [Unknown]
  - Abdominal pain [Unknown]
  - Appendicectomy [Unknown]
  - Femur fracture [Recovered/Resolved]
  - Osteoporosis [Unknown]
  - Fall [Unknown]
  - Open reduction of fracture [Unknown]
  - Radius fracture [Unknown]
  - Hyperlipidaemia [Unknown]
  - Osteopenia [Unknown]
  - Scoliosis [Unknown]
  - Urinary tract infection [Unknown]

NARRATIVE: CASE EVENT DATE: 20071016
